FAERS Safety Report 11309534 (Version 1)
Quarter: 2015Q3

REPORT INFORMATION
  Report Type: Report from Study
  Country: NL (occurrence: NL)
  Receive Date: 20150724
  Receipt Date: 20150724
  Transmission Date: 20151125
  Serious: Yes (Hospitalization)
  Sender: FDA-Public Use
  Company Number: NL-ABBVIE-14P-114-1227344-00

PATIENT
  Age: 58 Year
  Sex: Female
  Weight: 72 kg

DRUGS (5)
  1. LORAZEPAM. [Concomitant]
     Active Substance: LORAZEPAM
     Indication: PRODUCT USED FOR UNKNOWN INDICATION
     Route: 048
  2. THYRAX [Concomitant]
     Active Substance: LEVOTHYROXINE
     Indication: PRODUCT USED FOR UNKNOWN INDICATION
     Route: 048
  3. CARBAMAZEPINE. [Concomitant]
     Active Substance: CARBAMAZEPINE
     Indication: PRODUCT USED FOR UNKNOWN INDICATION
     Route: 048
  4. DUODOPA [Suspect]
     Active Substance: CARBIDOPA\LEVODOPA
     Indication: PARKINSON^S DISEASE
     Dosage: MD:3.5, CD: 2.7, ED: 0.8, ND: 1.7
     Route: 050
     Dates: start: 20110131
  5. DUODOPA [Suspect]
     Active Substance: CARBIDOPA\LEVODOPA
     Dosage: MD:0.5, CD: 2.8, ED: 0.8, ND: 1.8
     Route: 050

REACTIONS (6)
  - Catheter site infection [Recovered/Resolved]
  - Stoma site infection [Recovered/Resolved]
  - Catheter site extravasation [Recovered/Resolved]
  - Stoma site erythema [Recovered/Resolved]
  - Seizure [Recovered/Resolved]
  - Stoma site pain [Recovered/Resolved]

NARRATIVE: CASE EVENT DATE: 20110131
